FAERS Safety Report 6842800-4 (Version None)
Quarter: 2010Q3

REPORT INFORMATION
  Report Type: 
  Country: None (occurrence: None)
  Receive Date: 20100714
  Receipt Date: 20070807
  Transmission Date: 20110219
  Serious: No
  Sender: FDA-Public Use
  Company Number: US-PFIZER INC-2007066333

PATIENT
  Sex: Female
  Weight: 68.2 kg

DRUGS (3)
  1. CHANTIX [Suspect]
     Indication: SMOKING CESSATION THERAPY
     Dates: start: 20070502, end: 20070515
  2. INSULIN GLARGINE [Concomitant]
     Indication: DIABETES MELLITUS
  3. AVANDIA [Concomitant]
     Indication: DIABETES MELLITUS

REACTIONS (2)
  - INCORRECT DOSE ADMINISTERED [None]
  - NAUSEA [None]
